FAERS Safety Report 5211755-0 (Version None)
Quarter: 2007Q1

REPORT INFORMATION
  Report Type: 
  Country: None (occurrence: None)
  Receive Date: 20070117
  Receipt Date: 20070117
  Transmission Date: 20070707
  Serious: Yes (Life-Threatening, Disabling)
  Sender: FDA-Public Use
  Company Number: None

PATIENT
  Age: 38 Year
  Sex: Female
  Weight: 70.3075 kg

DRUGS (1)
  1. ORTHO TRI-CYCLEN LO [Suspect]
     Indication: CONTRACEPTION
     Dosage: 1 PILL DAILY  PO
     Route: 048
     Dates: start: 20030927, end: 20061212

REACTIONS (3)
  - DEEP VEIN THROMBOSIS [None]
  - LIGAMENT RUPTURE [None]
  - POST PROCEDURAL COMPLICATION [None]
